FAERS Safety Report 4785167-8 (Version None)
Quarter: 2005Q3

REPORT INFORMATION
  Report Type: 
  Country: None (occurrence: None)
  Receive Date: 20050929
  Receipt Date: 20050919
  Transmission Date: 20060218
  Serious: No
  Sender: FDA-Public Use
  Company Number: B0374507A

PATIENT
  Age: 41 Year
  Sex: Female

DRUGS (7)
  1. ALKERAN [Suspect]
     Indication: STEM CELL TRANSPLANT
  2. CARMUSTINE [Suspect]
  3. ETOPOSIDE (FORMULATOIN UNKNOWN) (ETOPOSIDE) [Suspect]
     Indication: STEM CELL TRANSPLANT
  4. CYTARABINE [Suspect]
  5. ALEMTUZUMAB (FORMULATION UNKNOWN) (ALEMTUZUMAB) [Suspect]
     Indication: STEM CELL TRANSPLANT
     Dosage: 20 MG/ FIVE TIMES PER DAY
  6. CYCLOSPORINE [Concomitant]
  7. METHOTREXATE [Concomitant]

REACTIONS (6)
  - ANAEMIA HAEMOLYTIC AUTOIMMUNE [None]
  - MEGAKARYOCYTES INCREASED [None]
  - POLYCHROMASIA [None]
  - RETICULOCYTOSIS [None]
  - SPHEROCYTIC ANAEMIA [None]
  - THROMBOCYTOPENIA [None]
